FAERS Safety Report 6705687-6 (Version None)
Quarter: 2010Q2

REPORT INFORMATION
  Report Type: 
  Country: None (occurrence: None)
  Receive Date: 20100503
  Receipt Date: 20100423
  Transmission Date: 20101027
  Serious: Yes (Other)
  Sender: FDA-Public Use
  Company Number: NL-JNJFOC-20100406720

PATIENT
  Sex: Male

DRUGS (1)
  1. TRISPORAL [Suspect]
     Indication: BALANITIS
     Route: 065

REACTIONS (1)
  - FACIAL PALSY [None]
